FAERS Safety Report 13605471 (Version 1)
Quarter: 2017Q2

REPORT INFORMATION
  Report Type: Spontaneous
  Country: US (occurrence: US)
  Receive Date: 20170602
  Receipt Date: 20170602
  Transmission Date: 20170830
  Serious: Yes (Other)
  Sender: FDA-Public Use
  Company Number: None

PATIENT
  Age: 24 Year
  Sex: Female
  Weight: 64.35 kg

DRUGS (12)
  1. C-LIDO-ESTRADIOL VAGINAL CREAM (LIDOCAINE) [Suspect]
     Active Substance: LIDOCAINE
     Indication: HORMONE REPLACEMENT THERAPY
     Dosage: QUANTITY:60 OUNCE(S);?
     Route: 067
     Dates: start: 20170201, end: 20170307
  2. JUNEL FE 1/20 [Concomitant]
     Active Substance: ETHINYL ESTRADIOL\NORETHINDRONE ACETATE
  3. C-LIDO-ESTRADIOL VAGINAL CREAM (ESTRADIOL) [Suspect]
     Active Substance: ESTRADIOL
  4. FLOVENT [Concomitant]
     Active Substance: FLUTICASONE PROPIONATE
  5. MONTELUKAST [Concomitant]
     Active Substance: MONTELUKAST SODIUM
  6. ALPHA LIPOIC ACID [Concomitant]
     Active Substance: .ALPHA.-LIPOIC ACID
  7. ACETYL EL CARNITINE [Concomitant]
  8. RANITIDINE. [Concomitant]
     Active Substance: RANITIDINE
  9. LEUTINE [Concomitant]
  10. PROAIR HFA [Concomitant]
     Active Substance: ALBUTEROL SULFATE
  11. FLUTICASONE. [Concomitant]
     Active Substance: FLUTICASONE
  12. CENTRUM [Concomitant]
     Active Substance: VITAMINS

REACTIONS (7)
  - Burning sensation [None]
  - Hair growth abnormal [None]
  - Headache [None]
  - Decreased appetite [None]
  - Amenorrhoea [None]
  - Nausea [None]
  - Pain [None]

NARRATIVE: CASE EVENT DATE: 20170412
